FAERS Safety Report 6323848-5 (Version None)
Quarter: 2009Q3

REPORT INFORMATION
  Report Type: 
  Country: None (occurrence: None)
  Receive Date: 20090818
  Receipt Date: 20090401
  Transmission Date: 20100115
  Serious: Yes (Hospitalization)
  Sender: FDA-Public Use
  Company Number: MEDI-0008265

PATIENT
  Age: 29 Month
  Sex: Female
  Weight: 13.48 kg

DRUGS (4)
  1. SYNAGIS [Suspect]
     Indication: RESPIRATORY SYNCYTIAL VIRUS INFECTION
     Dosage: 15 MG/KG, 1 IN 1 M, INTRAMUSCULAR, 15 MG/KG, 1 IN 1 M, INTRAMUSCULAR
     Route: 030
     Dates: start: 20081021, end: 20090224
  2. SYNAGIS [Suspect]
     Indication: RESPIRATORY SYNCYTIAL VIRUS INFECTION
     Dosage: 15 MG/KG, 1 IN 1 M, INTRAMUSCULAR, 15 MG/KG, 1 IN 1 M, INTRAMUSCULAR
     Route: 030
     Dates: start: 20081021
  3. ASPIRIN [Concomitant]
  4. DIGOXIN [Concomitant]

REACTIONS (1)
  - RESPIRATORY SYNCYTIAL VIRUS INFECTION [None]
